FAERS Safety Report 4702281-3 (Version None)
Quarter: 2005Q2

REPORT INFORMATION
  Report Type: 
  Country: None (occurrence: None)
  Receive Date: 20050614
  Receipt Date: 20050601
  Transmission Date: 20051028
  Serious: Yes (Hospitalization, Other)
  Sender: FDA-Public Use
  Company Number: SAGL-ZLB/05/58/LIT

PATIENT
  Age: 46 Year
  Sex: Male

DRUGS (3)
  1. SANDOGLOBULIN [Suspect]
     Indication: IDIOPATHIC THROMBOCYTOPENIC PURPURA
     Dosage: 0.4 G/KG B.W., ONCE, I.V.
     Route: 042
     Dates: start: 20050203
  2. HYPOGLYCEMIC MEDICATION (ORAL ANTIDIABETICS) [Concomitant]
  3. LIPID-LOWERING MEDICATIONS(LIPOREDUCT) [Concomitant]

REACTIONS (7)
  - CHEST PAIN [None]
  - CORONARY ARTERY OCCLUSION [None]
  - DISEASE RECURRENCE [None]
  - ELECTROCARDIOGRAM ST SEGMENT ELEVATION [None]
  - MYOCARDIAL ISCHAEMIA [None]
  - PLATELET COUNT DECREASED [None]
  - THERAPY NON-RESPONDER [None]
